FAERS Safety Report 12207336 (Version 1)
Quarter: 2016Q1

REPORT INFORMATION
  Report Type: Spontaneous
  Country: GB (occurrence: GB)
  Receive Date: 20160324
  Receipt Date: 20160324
  Transmission Date: 20160526
  Serious: Yes (Life-Threatening)
  Sender: FDA-Public Use
  Company Number: GB-FRESENIUS KABI-FK201601482

PATIENT
  Age: 42 Year
  Sex: Female
  Weight: 62.1 kg

DRUGS (6)
  1. INTRALIPID [Suspect]
     Active Substance: EGG PHOSPHOLIPIDS\GLYCERIN\SOYBEAN OIL
     Indication: NATURAL KILLER T CELL COUNT
  2. DEXAMETHASONE. [Concomitant]
     Active Substance: DEXAMETHASONE
  3. PREDNISOLON [Concomitant]
     Active Substance: PREDNISOLONE
  4. SUPRECUR [Concomitant]
     Active Substance: BUSERELIN
  5. INTRALIPID [Suspect]
     Active Substance: EGG PHOSPHOLIPIDS\GLYCERIN\SOYBEAN OIL
     Indication: CELL-MEDIATED CYTOTOXICITY
     Route: 041
     Dates: start: 20160307, end: 20160307
  6. MENOPUR [Concomitant]
     Active Substance: FOLLICLE STIMULATING HORMONE BETA POLYPEPTIDE\LUTROPIN ALFA

REACTIONS (6)
  - Pulse absent [Recovered/Resolved]
  - Muscle rigidity [Recovered/Resolved]
  - Cardiac arrest [Recovered/Resolved]
  - Posturing [Recovered/Resolved]
  - Stridor [Recovered/Resolved]
  - Loss of consciousness [Recovered/Resolved]

NARRATIVE: CASE EVENT DATE: 20160307
